FAERS Safety Report 17916828 (Version 1)
Quarter: 2020Q2

REPORT INFORMATION
  Report Type: Report from Study
  Country: US (occurrence: US)
  Receive Date: 20200619
  Receipt Date: 20200619
  Transmission Date: 20200714
  Serious: Yes (Hospitalization)
  Sender: FDA-Public Use
  Company Number: US-EISAI MEDICAL RESEARCH-EC-2020-075147

PATIENT
  Age: 84 Year
  Sex: Female
  Weight: 70 kg

DRUGS (19)
  1. MOTRIN [Concomitant]
     Active Substance: IBUPROFEN
  2. TRAMADOL HCL [Concomitant]
     Active Substance: TRAMADOL HYDROCHLORIDE
  3. METOPROLOL TARTRATE. [Concomitant]
     Active Substance: METOPROLOL TARTRATE
  4. LENVIMA [Suspect]
     Active Substance: LENVATINIB
     Indication: ENDOMETRIAL CANCER
     Route: 048
     Dates: start: 20200513, end: 20200530
  5. PANTOPRAZOLE SODIUM. [Concomitant]
     Active Substance: PANTOPRAZOLE SODIUM
  6. COLACE [Concomitant]
     Active Substance: DOCUSATE SODIUM
  7. ATORVASTATIN CALCIUM. [Concomitant]
     Active Substance: ATORVASTATIN CALCIUM
  8. MAGNESIUM [Concomitant]
     Active Substance: MAGNESIUM
  9. VENTOLIN HFA [Concomitant]
     Active Substance: ALBUTEROL SULFATE
  10. OXYCODONE HYDROCHLORIDE. [Concomitant]
     Active Substance: OXYCODONE HYDROCHLORIDE
  11. KEYTRUDA [Concomitant]
     Active Substance: PEMBROLIZUMAB
  12. ZYRTEC [Concomitant]
     Active Substance: CETIRIZINE HYDROCHLORIDE
  13. ELIQUIS [Concomitant]
     Active Substance: APIXABAN
  14. FERROUS SULFATE. [Concomitant]
     Active Substance: FERROUS SULFATE
  15. MULTIVITAMIN PLUS IRON [Concomitant]
  16. CALCIUM 500 + D [Concomitant]
     Active Substance: CALCIUM\VITAMIN D
  17. OXYBUTYNIN CHLORIDE. [Concomitant]
     Active Substance: OXYBUTYNIN CHLORIDE
  18. MEGESTROL ACETATE. [Concomitant]
     Active Substance: MEGESTROL ACETATE
  19. TYLENOL [Concomitant]
     Active Substance: ACETAMINOPHEN

REACTIONS (10)
  - Dysphagia [Recovering/Resolving]
  - Decreased appetite [Not Recovered/Not Resolved]
  - Constipation [Not Recovered/Not Resolved]
  - Nausea [Not Recovered/Not Resolved]
  - Unresponsive to stimuli [Recovering/Resolving]
  - Diarrhoea [Not Recovered/Not Resolved]
  - Lethargy [Recovering/Resolving]
  - Abdominal discomfort [Not Recovered/Not Resolved]
  - Pain [Not Recovered/Not Resolved]
  - Flatulence [Not Recovered/Not Resolved]

NARRATIVE: CASE EVENT DATE: 20200519
